FAERS Safety Report 13107501 (Version 1)
Quarter: 2017Q1

REPORT INFORMATION
  Report Type: Spontaneous
  Country: US (occurrence: US)
  Receive Date: 20170112
  Receipt Date: 20170112
  Transmission Date: 20170428
  Serious: No
  Sender: FDA-Public Use
  Company Number: US-TEVA-697990USA

PATIENT
  Age: 49 Year
  Sex: Female

DRUGS (1)
  1. ETHINYLESTRADIOL W/ETHYNODIOL [Suspect]
     Active Substance: ETHINYL ESTRADIOL\ETHYNODIOL
     Route: 065
     Dates: start: 20160824

REACTIONS (4)
  - Product quality issue [Unknown]
  - Feeling abnormal [Unknown]
  - Migraine [Unknown]
  - Product physical issue [None]

NARRATIVE: CASE EVENT DATE: 20160825
